FAERS Safety Report 5737062-5 (Version None)
Quarter: 2008Q2

REPORT INFORMATION
  Report Type: 
  Country: None (occurrence: None)
  Receive Date: 20080513
  Receipt Date: 20080513
  Transmission Date: 20081010
  Serious: Yes (Other)
  Sender: FDA-Public Use
  Company Number: None

PATIENT
  Sex: Female

DRUGS (9)
  1. DIGOXIN [Suspect]
     Dosage: ONE DAILY PO
     Route: 048
     Dates: start: 20080118, end: 20080508
  2. CHLORZOXAZONE [Concomitant]
  3. BUMETANIDE [Concomitant]
  4. WARFARIN SODIUM [Concomitant]
  5. METFORMIN HCL [Concomitant]
  6. POT CHLOR ER [Concomitant]
  7. SERTRALINE [Concomitant]
  8. AMLODIPINE/BENAZEPR [Concomitant]
  9. METOPRO SUC-TOPROL-ER [Concomitant]

REACTIONS (2)
  - CARDIAC DISORDER [None]
  - PHARMACEUTICAL PRODUCT COMPLAINT [None]
